FAERS Safety Report 6573926-0 (Version None)
Quarter: 2010Q1

REPORT INFORMATION
  Report Type: 
  Country: None (occurrence: None)
  Receive Date: 20100208
  Receipt Date: 20100201
  Transmission Date: 20100710
  Serious: Yes (Other)
  Sender: FDA-Public Use
  Company Number: US-JNJCH-2010003257

PATIENT
  Age: 74 Year
  Sex: Male
  Weight: 104.3 kg

DRUGS (1)
  1. BENADRYL [Suspect]
     Indication: HYPERSENSITIVITY
     Dosage: TEXT:UNSPECIFIED - TWICE DAILY
     Route: 048

REACTIONS (1)
  - BLOOD GLUCOSE INCREASED [None]
